FAERS Safety Report 17545066 (Version 1)
Quarter: 2020Q1

REPORT INFORMATION
  Report Type: Spontaneous
  Country: US (occurrence: US)
  Receive Date: 20200313
  Receipt Date: 20200313
  Transmission Date: 20200409
  Serious: No
  Sender: FDA-Public Use
  Company Number: None

PATIENT
  Age: 29 Year
  Sex: Female

DRUGS (2)
  1. HUMIRA [Suspect]
     Active Substance: ADALIMUMAB
     Indication: COLITIS ULCERATIVE
     Dates: start: 20200311
  2. DEVICE [Suspect]
     Active Substance: DEVICE

REACTIONS (3)
  - Hypersensitivity [None]
  - Device allergy [None]
  - Injection site haemorrhage [None]

NARRATIVE: CASE EVENT DATE: 20200312
